FAERS Safety Report 24767958 (Version 1)
Quarter: 2024Q4

REPORT INFORMATION
  Report Type: Report from Study
  Country: CO (occurrence: CO)
  Receive Date: 20241223
  Receipt Date: 20241223
  Transmission Date: 20250115
  Serious: Yes (Hospitalization)
  Sender: ASTELLAS
  Company Number: CO-ASTELLAS-2024-AER-026315

PATIENT
  Age: 55 Year
  Weight: 55 kg

DRUGS (1)
  1. TACROLIMUS [Suspect]
     Active Substance: TACROLIMUS
     Indication: Heart transplant
     Dosage: 10 MG ONCE DAILY (2 CAPSULES OF 5MG)
     Route: 048

REACTIONS (2)
  - Eye inflammation [Recovering/Resolving]
  - Inflammation [Recovering/Resolving]
